FAERS Safety Report 6114166-9 (Version None)
Quarter: 2009Q1

REPORT INFORMATION
  Report Type: 
  Country: None (occurrence: None)
  Receive Date: 20090312
  Receipt Date: 20080429
  Transmission Date: 20090719
  Serious: Yes (Hospitalization)
  Sender: FDA-Public Use
  Company Number: US-ABBOTT-08P-163-0449501-00

PATIENT
  Age: 56 Year
  Sex: Male

DRUGS (1)
  1. DEPAKOTE [Suspect]
     Indication: DRUG USE FOR UNKNOWN INDICATION
     Route: 048
     Dates: start: 20080206, end: 20080207

REACTIONS (2)
  - HEADACHE [None]
  - HYPERTENSION [None]
